FAERS Safety Report 6518942-X (Version None)
Quarter: 2009Q4

REPORT INFORMATION
  Report Type: 
  Country: None (occurrence: None)
  Receive Date: 20091228
  Receipt Date: 20091216
  Transmission Date: 20100525
  Serious: Yes (Hospitalization)
  Sender: FDA-Public Use
  Company Number: JP-BRISTOL-MYERS SQUIBB COMPANY-14902860

PATIENT
  Age: 71 Year
  Sex: Female

DRUGS (3)
  1. BARACLUDE [Suspect]
     Indication: HEPATITIS B
     Route: 048
     Dates: start: 20090611, end: 20090917
  2. ONEALFA [Suspect]
     Route: 048
  3. CALCIUM ASPARTATE [Concomitant]
     Dosage: TABLET
     Route: 048

REACTIONS (1)
  - ERYTHEMA MULTIFORME [None]
